FAERS Safety Report 22362481 (Version 1)
Quarter: 2023Q2

REPORT INFORMATION
  Report Type: Spontaneous
  Country: None (occurrence: US)
  Receive Date: 20230524
  Receipt Date: 20230524
  Transmission Date: 20230721
  Serious: Yes (Other)
  Sender: FDA-Public Use
  Company Number: US-Leiters-2141961

PATIENT
  Age: 42 Year
  Sex: Female

DRUGS (1)
  1. BEVACIZUMAB [Suspect]
     Active Substance: BEVACIZUMAB
     Indication: Endophthalmitis
     Route: 047
     Dates: start: 20230503, end: 20230503

REACTIONS (1)
  - Endophthalmitis [Recovering/Resolving]

NARRATIVE: CASE EVENT DATE: 20230512
